FAERS Safety Report 16058063 (Version 1)
Quarter: 2019Q1

REPORT INFORMATION
  Report Type: Spontaneous
  Country: US (occurrence: US)
  Receive Date: 20190311
  Receipt Date: 20190311
  Transmission Date: 20190418
  Serious: Yes (Other)
  Sender: FDA-Public Use
  Company Number: US-AMREGENT-20190362

PATIENT
  Age: 19 Year
  Sex: Female

DRUGS (1)
  1. INJECTAFER [Suspect]
     Active Substance: FERRIC CARBOXYMALTOSE
     Dosage: UNKNOWN
     Route: 042
     Dates: start: 20190224, end: 20190224

REACTIONS (3)
  - Urticaria [Unknown]
  - Pharyngeal oedema [Unknown]
  - Ear swelling [Unknown]

NARRATIVE: CASE EVENT DATE: 20190224
